FAERS Safety Report 7093178-5 (Version None)
Quarter: 2010Q4

REPORT INFORMATION
  Report Type: 
  Country: None (occurrence: None)
  Receive Date: 20101110
  Receipt Date: 20080827
  Transmission Date: 20110411
  Serious: No
  Sender: FDA-Public Use
  Company Number: US-KINGPHARMUSA00001-K200801007

PATIENT
  Age: 64 Year
  Sex: Female
  Weight: 77.098 kg

DRUGS (9)
  1. LEVOXYL [Suspect]
     Indication: HYPOTHYROIDISM
     Dosage: 100 MCG, QD
     Route: 048
     Dates: end: 20071201
  2. LEVOXYL [Suspect]
     Dosage: 112 MCG, QD
     Dates: start: 20071201, end: 20080701
  3. LEVOXYL [Suspect]
     Dosage: 112 MCG 6 DAYS/WEEK AND ONE HALF 112 MCG ONE DAY/WEEK
     Dates: start: 20080701
  4. GLIPIZIDE [Concomitant]
     Indication: DIABETES MELLITUS
     Route: 048
     Dates: start: 20050101
  5. AVANDAMET [Concomitant]
     Indication: DIABETES MELLITUS
     Route: 048
     Dates: start: 20050101
  6. INSULIN GLARGINE [Concomitant]
     Indication: DIABETES MELLITUS
     Dosage: UNK, QD
     Route: 058
     Dates: start: 20050101
  7. EXENATIDE [Concomitant]
     Indication: DIABETES MELLITUS
     Dates: start: 20050101
  8. SIMVASTATIN [Concomitant]
     Indication: HYPERCHOLESTEROLAEMIA
     Dates: start: 20050101
  9. UNSPECIFIED BLOOD PRESSURE MEDICATION [Concomitant]
     Indication: HYPERTENSION

REACTIONS (2)
  - ALOPECIA [None]
  - THYROID FUNCTION TEST ABNORMAL [None]
